FAERS Safety Report 7788031-5 (Version None)
Quarter: 2011Q3

REPORT INFORMATION
  Report Type: 
  Country: None (occurrence: None)
  Receive Date: 20110927
  Receipt Date: 20110912
  Transmission Date: 20111222
  Serious: Yes (Hospitalization)
  Sender: FDA-Public Use
  Company Number: EU-2011-10172

PATIENT
  Age: 79 Year
  Sex: Male

DRUGS (14)
  1. COROPRES COMPRIMIDOS, 28 COMPRIMIDOS (CARVEDILOL) [Concomitant]
  2. SEGURIL COMPRIMIDOS, 30 COMPRIMIDOS (FUROSEMIDA) [Concomitant]
  3. VERNIES COMPRIMIDOS, 30 COMPRIMIDOS (NITROGLICERINA) [Concomitant]
  4. ZYLORIC COMPRIMIDOS, 30 COMPRIMIDOS (ALOPURINOL) [Concomitant]
  5. MOLSIDAIN COMPRIMIDOS, 30 COMPRIMIDOS (MOLSIDOMINA) [Concomitant]
  6. PLETAL [Concomitant]
  7. RAMIPRIL [Concomitant]
  8. ARANESP 1 PLUM PREC SOL INY (DARBEPOETINI ALFA) [Concomitant]
  9. SINTROM COMPRIMIDOS, 20 COMPRIMIDOS (ACENOCUMAROL) [Concomitant]
  10. DIGOXIN [Concomitant]
  11. ATORVASTATINA (ATORVASTATIN CALCIUM) [Concomitant]
  12. UNIKET RETARD COMPRIMIDOS DE LIBERACION PROLONGADA, 30 COMPRIMID (ISOS [Concomitant]
  13. PLETAL [Suspect]
     Indication: INTERMITTENT CLAUDICATION
     Dosage: 100 MG MILLIGRAM(S), BID, ORAL
     Route: 048
     Dates: start: 20110419, end: 20110519
  14. ELECOR COMPRIMIDOS RECUBIERTOS CON PELICULA, 30 COMPRIMIDOS (EPLERENON [Concomitant]

REACTIONS (8)
  - ATRIAL TACHYCARDIA [None]
  - TROPONIN I INCREASED [None]
  - CARDIAC FAILURE [None]
  - LEFT VENTRICULAR FAILURE [None]
  - ACUTE MYOCARDIAL INFARCTION [None]
  - ATRIAL FLUTTER [None]
  - CARDIO-RESPIRATORY ARREST [None]
  - CARDIAC ARREST [None]
